FAERS Safety Report 17112790 (Version 1)
Quarter: 2019Q4

REPORT INFORMATION
  Report Type: Report from Study
  Country: BE (occurrence: BE)
  Receive Date: 20191204
  Receipt Date: 20191204
  Transmission Date: 20200122
  Serious: Yes (Other)
  Sender: FDA-Public Use
  Company Number: PHHY2016BE001506

PATIENT
  Age: 40 Year
  Sex: Female

DRUGS (2)
  1. COENZYME Q10 [Concomitant]
     Active Substance: UBIDECARENONE
     Indication: FATIGUE
     Dosage: UNK
     Route: 065
     Dates: start: 20140925
  2. GILENYA [Suspect]
     Active Substance: FINGOLIMOD HYDROCHLORIDE
     Indication: MULTIPLE SCLEROSIS
     Dosage: QD
     Route: 048
     Dates: start: 20120716

REACTIONS (5)
  - Vitamin D deficiency [Unknown]
  - Cystitis [Unknown]
  - Gamma-glutamyltransferase increased [Unknown]
  - Hypertension [Unknown]
  - Lymphocyte count decreased [Unknown]

NARRATIVE: CASE EVENT DATE: 20140925
